FAERS Safety Report 4704292-0 (Version None)
Quarter: 2005Q2

REPORT INFORMATION
  Report Type: 
  Country: None (occurrence: None)
  Receive Date: 20050630
  Receipt Date: 20050620
  Transmission Date: 20051028
  Serious: Yes (Other)
  Sender: FDA-Public Use
  Company Number: 2005UW09340

PATIENT
  Age: 17 Year
  Sex: Male
  Weight: 83.9 kg

DRUGS (2)
  1. SEROQUEL [Suspect]
     Dates: start: 20050301
  2. CYMBALTA [Concomitant]

REACTIONS (2)
  - HAEMATEMESIS [None]
  - HAEMATOCHEZIA [None]
